FAERS Safety Report 20213387 (Version 1)
Quarter: 2021Q4

REPORT INFORMATION
  Report Type: Spontaneous
  Country: US (occurrence: None)
  Receive Date: 20211221
  Receipt Date: 20211221
  Transmission Date: 20220303
  Serious: Yes (Hospitalization)
  Sender: FDA-Public Use
  Company Number: None

PATIENT
  Age: 73 Year
  Sex: Female

DRUGS (21)
  1. MYCOPHENOLIC ACID [Suspect]
     Active Substance: MYCOPHENOLIC ACID
     Dosage: FREQUENCY : TWICE A DAY;?
     Route: 048
     Dates: start: 20200612
  2. MYCOPHENOLIC ACID [Suspect]
     Active Substance: MYCOPHENOLIC ACID
     Dosage: FREQUENCY : TWICE A DAY;?
     Route: 048
  3. AMITRIPTYLINE [Concomitant]
     Active Substance: AMITRIPTYLINE
  4. B-COMPLEX-C [Concomitant]
  5. CLONIDINE [Concomitant]
     Active Substance: CLONIDINE
  6. FLAX SEED [Concomitant]
  7. HYDRALAZINE [Concomitant]
     Active Substance: HYDRALAZINE HYDROCHLORIDE
  8. LASIX [Concomitant]
     Active Substance: FUROSEMIDE
  9. MULTIPLE VIT [Concomitant]
  10. OMEPRAZOLE [Concomitant]
     Active Substance: OMEPRAZOLE
  11. PREDNISONE [Suspect]
     Active Substance: PREDNISONE
  12. PRILOSEC [Concomitant]
     Active Substance: OMEPRAZOLE MAGNESIUM
  13. PROGRAF [Concomitant]
     Active Substance: TACROLIMUS
  14. PROLIA [Concomitant]
     Active Substance: DENOSUMAB
  15. RAPAMUNE [Concomitant]
     Active Substance: SIROLIMUS
  16. SINGULAIR [Concomitant]
     Active Substance: MONTELUKAST SODIUM
  17. ST JOSEPH AS CHW [Concomitant]
  18. SYNTHROID [Concomitant]
  19. TACROLIMUS [Concomitant]
     Active Substance: TACROLIMUS
  20. TACROLIMUS A [Concomitant]
  21. THERAPEUTIC [Concomitant]

REACTIONS (1)
  - Infection [None]

NARRATIVE: CASE EVENT DATE: 20211220
